FAERS Safety Report 7852564-3 (Version None)
Quarter: 2011Q4

REPORT INFORMATION
  Report Type: 
  Country: None (occurrence: None)
  Receive Date: 20111026
  Receipt Date: 20111019
  Transmission Date: 20120403
  Serious: Yes (Other)
  Sender: FDA-Public Use
  Company Number: JP-PFIZER INC-2011253009

PATIENT
  Age: 42 Year
  Sex: Male
  Weight: 72.3 kg

DRUGS (17)
  1. MOTILIUM [Concomitant]
     Dosage: 1 DF, 1X/DAY
     Route: 054
     Dates: start: 20090708, end: 20090711
  2. DECADRON [Concomitant]
     Indication: RENAL CELL CARCINOMA
     Dosage: 1 MG, 1X/DAY
     Route: 048
     Dates: start: 20090518
  3. LEVOTHYROXINE SODIUM [Concomitant]
     Dosage: 50 UG, 1X/DAY
     Route: 048
     Dates: start: 20090522
  4. FAMOTIDINE [Concomitant]
     Indication: PROPHYLAXIS
     Dosage: 20 MG, 1X/DAY
     Route: 048
     Dates: start: 20090518
  5. SUNITINIB MALATE [Suspect]
     Dosage: 50 MG, 1X/DAY
     Dates: start: 20090615, end: 20090708
  6. ZOMETA [Suspect]
     Indication: RENAL CELL CARCINOMA
     Dosage: 4 MG, MONTHLY
     Route: 041
  7. MAGMITT [Concomitant]
     Indication: CONSTIPATION
     Dosage: 330 MG, 3X/DAY
     Route: 048
  8. UREPEARL [Concomitant]
     Dosage: UNK
     Route: 061
     Dates: start: 20090527
  9. LAC B [Concomitant]
     Dosage: 1 G, 3X/DAY
     Route: 048
     Dates: start: 20090709, end: 20090711
  10. SUNITINIB MALATE [Suspect]
     Dosage: 50 MG, 1X/DAY
     Dates: start: 20090523, end: 20090531
  11. SUNITINIB MALATE [Suspect]
     Dosage: UNK
     Dates: start: 20090907, end: 20111004
  12. PRIMPERAN TAB [Concomitant]
     Dosage: 5 MG, 1X/DAY
     Dates: start: 20090710, end: 20090711
  13. SUNITINIB MALATE [Suspect]
     Indication: RENAL CELL CARCINOMA
     Dosage: 50 MG, 1X/DAY
     Dates: start: 20090504, end: 20090519
  14. SUNITINIB MALATE [Suspect]
     Dosage: 50 MG, 1X/DAY
     Dates: start: 20090727, end: 20090823
  15. DEXAMETHASONE [Concomitant]
     Dosage: UNK
     Route: 061
     Dates: start: 20090709
  16. SODIUM BICARBONATE [Concomitant]
     Dosage: UNK
     Dates: start: 20090710
  17. PURSENNID [Concomitant]
     Indication: CONSTIPATION
     Dosage: 24 MG, 1X/DAY
     Route: 048
     Dates: start: 20090505, end: 20090608

REACTIONS (5)
  - MOUTH HAEMORRHAGE [None]
  - TOOTH EXTRACTION [None]
  - OSTEONECROSIS OF JAW [None]
  - EXPOSED BONE IN JAW [None]
  - ORAL CAVITY FISTULA [None]
